FAERS Safety Report 15099928 (Version 1)
Quarter: 2018Q3

REPORT INFORMATION
  Report Type: Report from Study
  Country: IT (occurrence: IT)
  Receive Date: 20180703
  Receipt Date: 20180703
  Transmission Date: 20181010
  Serious: Yes (Hospitalization)
  Sender: FDA-Public Use
  Company Number: IT-CONCORDIA PHARMACEUTICALS INC.-E2B_00013211

PATIENT
  Age: 78 Year
  Sex: Male

DRUGS (9)
  1. OMNIC 0,4 MG, CAPSULE RIGIDE A RILASCIO MODIFICATO [Concomitant]
     Route: 048
  2. EUTIROX 100 MICROGRAMMI COMPRESSE [Concomitant]
     Active Substance: LEVOTHYROXINE SODIUM
     Route: 048
  3. EZETIMIBE. [Concomitant]
     Active Substance: EZETIMIBE
     Route: 048
  4. LANOXIN [Suspect]
     Active Substance: DIGOXIN
     Route: 048
     Dates: start: 20171009, end: 20171031
  5. LASIX [Concomitant]
     Active Substance: FUROSEMIDE
     Route: 048
  6. CLEXANE [Concomitant]
     Active Substance: ENOXAPARIN SODIUM
     Route: 058
  7. PANTORC [Concomitant]
     Active Substance: PANTOPRAZOLE SODIUM
     Route: 048
  8. CARDICOR 10 MG COMPRESSE RIVESTITE CON FILM [Concomitant]
     Route: 048
  9. AVODART 0,5 MG CAPSULE MOLLI [Concomitant]
     Route: 048

REACTIONS (2)
  - Bradycardia [Recovered/Resolved]
  - Accidental overdose [Recovered/Resolved]

NARRATIVE: CASE EVENT DATE: 20171031
